FAERS Safety Report 5205540-3 (Version None)
Quarter: 2006Q4

REPORT INFORMATION
  Report Type: 
  Country: None (occurrence: None)
  Receive Date: 20061027
  Receipt Date: 20060926
  Transmission Date: 20070319
  Serious: No
  Sender: FDA-Public Use
  Company Number: 200613477US

PATIENT
  Age: 62 Year
  Sex: Female
  Weight: 75 kg

DRUGS (6)
  1. KETEK [Suspect]
     Indication: BRONCHITIS
     Dosage: 800 MG QD PO
     Route: 048
     Dates: start: 20060324, end: 20060327
  2. KETEK [Suspect]
     Indication: SINUSITIS
     Dosage: 800 MG QD PO
     Route: 048
     Dates: start: 20060324, end: 20060327
  3. ESTRADIOOL [Concomitant]
  4. PROZAC [Concomitant]
  5. GUAIFENESIN [Concomitant]
  6. ESTRADIOL [Concomitant]

REACTIONS (7)
  - ANXIETY [None]
  - DIPLOPIA [None]
  - DIZZINESS [None]
  - INSOMNIA [None]
  - NERVOUSNESS [None]
  - VISION BLURRED [None]
  - VISUAL DISTURBANCE [None]
